FAERS Safety Report 13703147 (Version 1)
Quarter: 2017Q2

REPORT INFORMATION
  Report Type: Spontaneous
  Country: BR (occurrence: BR)
  Receive Date: 20170629
  Receipt Date: 20170629
  Transmission Date: 20170830
  Serious: Yes (Hospitalization)
  Sender: FDA-Public Use
  Company Number: BR-ASTRAZENECA-2017SE66657

PATIENT
  Age: 18 Month
  Sex: Male

DRUGS (2)
  1. AEROLIN [Concomitant]
     Active Substance: ALBUTEROL
     Indication: BRONCHITIS
  2. ALVESCO [Suspect]
     Active Substance: CICLESONIDE
     Indication: BRONCHITIS
     Route: 055
     Dates: start: 201605

REACTIONS (5)
  - Condition aggravated [Recovered/Resolved]
  - Pyrexia [Recovered/Resolved]
  - Off label use [Not Recovered/Not Resolved]
  - Drug administered to patient of inappropriate age [Unknown]
  - Product use in unapproved indication [Not Recovered/Not Resolved]

NARRATIVE: CASE EVENT DATE: 201605
